FAERS Safety Report 5392752-1 (Version None)
Quarter: 2007Q3

REPORT INFORMATION
  Report Type: 
  Country: None (occurrence: None)
  Receive Date: 20070720
  Receipt Date: 20070710
  Transmission Date: 20080115
  Serious: Yes (Other)
  Sender: FDA-Public Use
  Company Number: US-PFIZER INC-2007025716

PATIENT
  Sex: Female
  Weight: 53.5 kg

DRUGS (8)
  1. CHANTIX [Suspect]
     Indication: SMOKING CESSATION THERAPY
     Route: 048
     Dates: start: 20070101, end: 20070311
  2. SYNTHROID [Concomitant]
     Route: 048
  3. PROPRANOLOL [Concomitant]
     Route: 048
  4. PREVACID [Concomitant]
  5. PREMARIN [Concomitant]
  6. MAXALT [Concomitant]
  7. PHENERGAN VC [Concomitant]
  8. ANALGESICS [Concomitant]

REACTIONS (13)
  - AMNESIA [None]
  - DISTURBANCE IN ATTENTION [None]
  - EUPHORIC MOOD [None]
  - FEELING ABNORMAL [None]
  - HEADACHE [None]
  - ILLUSION [None]
  - IRRITABLE BOWEL SYNDROME [None]
  - MALAISE [None]
  - MENTAL IMPAIRMENT [None]
  - MIGRAINE [None]
  - NERVOUS SYSTEM DISORDER [None]
  - STRESS [None]
  - VERTIGO [None]
